FAERS Safety Report 25360018 (Version 1)
Quarter: 2025Q2

REPORT INFORMATION
  Report Type: Spontaneous
  Country: US (occurrence: US)
  Receive Date: 20250526
  Receipt Date: 20250526
  Transmission Date: 20250717
  Serious: Yes (Hospitalization)
  Sender: ROCHE
  Company Number: US-ROCHE-10000294785

PATIENT
  Sex: Male

DRUGS (1)
  1. ESBRIET [Suspect]
     Active Substance: PIRFENIDONE
     Indication: Interstitial lung disease
     Route: 065

REACTIONS (1)
  - Posterior reversible encephalopathy syndrome [Unknown]
